FAERS Safety Report 5323031-6 (Version None)
Quarter: 2007Q2

REPORT INFORMATION
  Report Type: 
  Country: None (occurrence: None)
  Receive Date: 20070220
  Receipt Date: 20070110
  Transmission Date: 20071010
  Serious: No
  Sender: FDA-Public Use
  Company Number: WAES 0701USA01231

PATIENT
  Age: 49 Year
  Sex: Female
  Weight: 98.4306 kg

DRUGS (11)
  1. JANUVIA [Suspect]
     Dosage: 100 MG/DAILY/PO
     Route: 048
     Dates: start: 20061025, end: 20061219
  2. ACTOS [Concomitant]
  3. AD1 [Concomitant]
  4. AVALIDE [Concomitant]
  5. CARDIZEM [Concomitant]
  6. CRESTOR [Concomitant]
  7. NEXIUM [Concomitant]
  8. TOPROL-XL [Concomitant]
  9. ASPIRIN [Concomitant]
  10. UBIDECARENONE [Concomitant]
  11. MULTI-VITAMINS [Concomitant]

REACTIONS (2)
  - LIP SWELLING [None]
  - RASH [None]
